FAERS Safety Report 20161333 (Version 1)
Quarter: 2021Q4

REPORT INFORMATION
  Report Type: Report from Study
  Country: JP (occurrence: JP)
  Receive Date: 20211208
  Receipt Date: 20211208
  Transmission Date: 20220303
  Serious: Yes (Death, Hospitalization)
  Sender: FDA-Public Use
  Company Number: JP-JNJFOC-A-CH2017-150265

PATIENT
  Age: 79 Year
  Sex: Male
  Weight: 63.5 kg

DRUGS (14)
  1. OPSUMIT [Suspect]
     Active Substance: MACITENTAN
     Indication: Pulmonary arterial hypertension
     Dosage: 10 MG, QD  IN THE MORNING
     Route: 048
     Dates: start: 20161112, end: 20181231
  2. OPSUMIT [Suspect]
     Active Substance: MACITENTAN
     Indication: Pulmonary arterial hypertension
  3. PREDONINE [Suspect]
     Active Substance: PREDNISOLONE
     Indication: Scleroderma
     Dosage: 15 MG QD AND 10 MD QD
     Route: 048
  4. PREDONINE [Suspect]
     Active Substance: PREDNISOLONE
     Indication: Systemic scleroderma
     Dosage: 8 MG, QD
     Route: 048
     Dates: start: 20170125, end: 20181231
  5. CALBLOCK [Concomitant]
     Active Substance: AZELNIDIPINE
     Indication: Scleroderma
     Dosage: UNK UNK, QD
     Route: 048
     Dates: end: 20170315
  6. CALBLOCK [Concomitant]
     Active Substance: AZELNIDIPINE
     Indication: Hypertension
  7. ASPIRIN [Concomitant]
     Active Substance: ASPIRIN
     Indication: Angina pectoris
     Route: 048
     Dates: end: 20181231
  8. FEBUXOSTAT [Concomitant]
     Active Substance: FEBUXOSTAT
     Indication: Hyperuricaemia
     Route: 048
     Dates: end: 20181231
  9. NICORANDIL [Concomitant]
     Active Substance: NICORANDIL
     Indication: Angina pectoris
     Route: 048
     Dates: end: 20181231
  10. AZOSEMIDE [Concomitant]
     Active Substance: AZOSEMIDE
     Indication: Right ventricular failure
     Route: 048
     Dates: start: 20170121, end: 20181231
  11. RISEDRONATE SODIUM [Concomitant]
     Active Substance: RISEDRONATE SODIUM
     Indication: Osteoporosis
     Route: 048
     Dates: start: 20170315
  12. CRESTOR [Concomitant]
     Active Substance: ROSUVASTATIN CALCIUM
     Indication: Hyperlipidaemia
     Route: 048
  13. OXYGEN [Concomitant]
     Active Substance: OXYGEN
     Dosage: DOSE UNKNOWN
     Route: 055
  14. SPIRONOLACTONE [Concomitant]
     Active Substance: SPIRONOLACTONE
     Indication: Right ventricular failure
     Route: 048
     Dates: start: 20170321, end: 20181231

REACTIONS (18)
  - Interstitial lung disease [Fatal]
  - Dyspnoea [Fatal]
  - Pneumonia aspiration [Fatal]
  - Scleroderma [Fatal]
  - Pneumonia bacterial [Recovering/Resolving]
  - Pulmonary sepsis [Fatal]
  - General physical health deterioration [Fatal]
  - Atrial fibrillation [Fatal]
  - Cardiac failure [Fatal]
  - Gastritis [Recovering/Resolving]
  - Hepatic function abnormal [Recovered/Resolved]
  - Aspartate aminotransferase increased [Recovered/Resolved]
  - Alanine aminotransferase increased [Recovered/Resolved]
  - Blood alkaline phosphatase increased [Recovered/Resolved]
  - Blood bilirubin increased [Recovered/Resolved]
  - Gamma-glutamyltransferase increased [Recovered/Resolved]
  - Diabetes mellitus [Recovering/Resolving]
  - Constipation [Recovering/Resolving]

NARRATIVE: CASE EVENT DATE: 20170113
